FAERS Safety Report 19012621 (Version 1)
Quarter: 2021Q1

REPORT INFORMATION
  Report Type: Spontaneous
  Country: US (occurrence: US)
  Receive Date: 20210315
  Receipt Date: 20210315
  Transmission Date: 20210420
  Serious: Yes (Hospitalization)
  Sender: FDA-Public Use
  Company Number: US-TEVA-2021-US-1887747

PATIENT
  Age: 38 Year
  Sex: Male

DRUGS (2)
  1. HALOPERIDOL. [Suspect]
     Active Substance: HALOPERIDOL
     Indication: AGITATION
     Dosage: ADMINISTERED ON THE DAY HE DEVELOPED AGITATION
     Route: 042
  2. HALOPERIDOL. [Suspect]
     Active Substance: HALOPERIDOL
     Dosage: DOSE: 2?5MG DAILY; ADMINISTERED OVER THE FOLLOWING DAYS
     Route: 042

REACTIONS (2)
  - Respiratory failure [Unknown]
  - Oromandibular dystonia [Unknown]
